FAERS Safety Report 6438169-X (Version None)
Quarter: 2009Q4

REPORT INFORMATION
  Report Type: 
  Country: None (occurrence: None)
  Receive Date: 20091112
  Receipt Date: 20091028
  Transmission Date: 20100525
  Serious: Yes (Other)
  Sender: FDA-Public Use
  Company Number: ES-PFIZER INC-2009291435

PATIENT
  Age: 44 Year
  Sex: Male

DRUGS (2)
  1. GEMFIBROZIL [Suspect]
  2. FENOFIBRATE [Suspect]

REACTIONS (1)
  - RENAL FAILURE [None]
